FAERS Safety Report 15562637 (Version 3)
Quarter: 2018Q4

REPORT INFORMATION
  Report Type: Spontaneous
  Country: JP (occurrence: JP)
  Receive Date: 20181029
  Receipt Date: 20181231
  Transmission Date: 20190205
  Serious: Yes (Hospitalization, Other)
  Sender: FDA-Public Use
  Company Number: JP-CELGENEUS-JPN-20181008989

PATIENT
  Age: 72 Year
  Sex: Male
  Weight: 60 kg

DRUGS (4)
  1. ABRAXANE [Suspect]
     Active Substance: PACLITAXEL
     Dosage: 90 MILLIGRAM
     Route: 041
     Dates: start: 20180718, end: 20181009
  2. ABRAXANE [Suspect]
     Active Substance: PACLITAXEL
     Dosage: 90 MILLIGRAM
     Route: 041
     Dates: start: 20180620
  3. CYRAMZA [Suspect]
     Active Substance: RAMUCIRUMAB
     Indication: METASTATIC GASTRIC CANCER
     Dosage: 440 MILLIGRAM
     Route: 041
     Dates: start: 20180606, end: 20181009
  4. ABRAXANE [Suspect]
     Active Substance: PACLITAXEL
     Indication: METASTATIC GASTRIC CANCER
     Dosage: 125 MILLIGRAM
     Route: 041
     Dates: start: 20180606, end: 20181009

REACTIONS (2)
  - Neutropenia [Recovered/Resolved]
  - Febrile neutropenia [Recovered/Resolved]

NARRATIVE: CASE EVENT DATE: 20180611
